FAERS Safety Report 5633424-5 (Version None)
Quarter: 2008Q1

REPORT INFORMATION
  Report Type: 
  Country: None (occurrence: None)
  Receive Date: 20080221
  Receipt Date: 20080212
  Transmission Date: 20080703
  Serious: Yes (Life-Threatening, Hospitalization)
  Sender: FDA-Public Use
  Company Number: IE-ROCHE-403411

PATIENT
  Age: 31 Year
  Sex: Male
  Weight: 65 kg

DRUGS (3)
  1. ROACCUTANE [Suspect]
     Indication: ACNE
     Route: 048
     Dates: start: 20050117, end: 20050206
  2. ROACCUTANE [Suspect]
     Route: 048
     Dates: start: 20050207, end: 20050306
  3. ROACCUTANE [Suspect]
     Route: 048
     Dates: start: 20050310, end: 20050321

REACTIONS (6)
  - AGITATION [None]
  - ANXIETY [None]
  - BLOOD BILIRUBIN INCREASED [None]
  - DEPRESSION [None]
  - SUICIDAL IDEATION [None]
  - SUICIDE ATTEMPT [None]
